FAERS Safety Report 4935064-X (Version None)
Quarter: 2006Q1

REPORT INFORMATION
  Report Type: 
  Country: None (occurrence: None)
  Receive Date: 20060306
  Receipt Date: 20060306
  Transmission Date: 20060701
  Serious: Yes (Life-Threatening, Hospitalization, Other)
  Sender: FDA-Public Use
  Company Number: None

PATIENT
  Sex: Male

DRUGS (1)
  1. HYALURONIDASE INJ [Suspect]

REACTIONS (2)
  - FUSOBACTERIUM INFECTION [None]
  - MENINGITIS [None]
